FAERS Safety Report 19714671 (Version 1)
Quarter: 2021Q3

REPORT INFORMATION
  Report Type: Report from Study
  Country: CA (occurrence: CA)
  Receive Date: 20210818
  Receipt Date: 20210818
  Transmission Date: 20211014
  Serious: Yes (Other)
  Sender: FDA-Public Use
  Company Number: NVSC2020CA211174

PATIENT
  Age: 46 Year
  Sex: Female

DRUGS (6)
  1. ERELZI [Suspect]
     Active Substance: ETANERCEPT-SZZS
     Dosage: 50 MG, QW
     Route: 058
     Dates: start: 202008
  2. NAPROXEN. [Concomitant]
     Active Substance: NAPROXEN
     Indication: PRODUCT USED FOR UNKNOWN INDICATION
     Dosage: UNK
     Route: 048
  3. SULFASALAZINE. [Concomitant]
     Active Substance: SULFASALAZINE
     Indication: PRODUCT USED FOR UNKNOWN INDICATION
     Dosage: UNK
     Route: 048
  4. CELEBREX [Concomitant]
     Active Substance: CELECOXIB
     Indication: PRODUCT USED FOR UNKNOWN INDICATION
     Dosage: UNK
     Route: 048
  5. ERELZI [Suspect]
     Active Substance: ETANERCEPT-SZZS
     Indication: PSORIATIC ARTHROPATHY
     Dosage: 50 MG, QW
     Route: 058
     Dates: start: 20200722
  6. METHOTREXATE. [Concomitant]
     Active Substance: METHOTREXATE
     Indication: PRODUCT USED FOR UNKNOWN INDICATION
     Dosage: UNK
     Route: 065
     Dates: start: 20191229

REACTIONS (23)
  - Fatigue [Unknown]
  - Back pain [Unknown]
  - Abdominal pain [Unknown]
  - Product dose omission issue [Unknown]
  - Neck pain [Unknown]
  - Tenderness [Unknown]
  - Mobility decreased [Unknown]
  - Urinary bladder haemorrhage [Unknown]
  - Musculoskeletal stiffness [Unknown]
  - Red blood cell abnormality [Unknown]
  - Joint swelling [Unknown]
  - Discomfort [Unknown]
  - General physical health deterioration [Unknown]
  - Dysstasia [Unknown]
  - Gait disturbance [Unknown]
  - Balance disorder [Unknown]
  - Uterine leiomyoma [Unknown]
  - Pain [Unknown]
  - Urinary tract infection [Recovered/Resolved]
  - Bursitis [Unknown]
  - Hypokinesia [Unknown]
  - Adenomyosis [Unknown]
  - Injection site pain [Recovered/Resolved]

NARRATIVE: CASE EVENT DATE: 20200722
